FAERS Safety Report 7548964-1 (Version None)
Quarter: 2011Q2

REPORT INFORMATION
  Report Type: 
  Country: None (occurrence: None)
  Receive Date: 20110615
  Receipt Date: 20110607
  Transmission Date: 20111010
  Serious: Yes (Other)
  Sender: FDA-Public Use
  Company Number: US-ROCHE-735496

PATIENT
  Sex: Male
  Weight: 77.1 kg

DRUGS (2)
  1. ACCUTANE [Suspect]
     Indication: ACNE
     Route: 065
     Dates: start: 19831029, end: 19840303
  2. ACCUTANE [Suspect]
     Route: 065
     Dates: start: 19870417, end: 19880220

REACTIONS (7)
  - ACNE [None]
  - DRY EYE [None]
  - COLITIS ULCERATIVE [None]
  - DRY SKIN [None]
  - GASTROINTESTINAL INJURY [None]
  - HAEMORRHOIDS [None]
  - ANXIETY [None]
